FAERS Safety Report 8176901-8 (Version None)
Quarter: 2012Q1

REPORT INFORMATION
  Report Type: 
  Country: None (occurrence: None)
  Receive Date: 20120301
  Receipt Date: 20120220
  Transmission Date: 20120608
  Serious: Yes (Other)
  Sender: FDA-Public Use
  Company Number: DE-PFIZER INC-2012043475

PATIENT
  Age: 65 Year
  Sex: Male

DRUGS (8)
  1. TROMCARDIN [Concomitant]
  2. MARCUPHEN [Concomitant]
     Dosage: UNK
     Dates: start: 20110401
  3. DIGITOXIN [Concomitant]
     Indication: ATRIAL FIBRILLATION
     Dosage: 0.07 MG, 1X/DAY
     Dates: start: 20110401
  4. DIUCOMB [Concomitant]
     Indication: CARDIAC FAILURE
     Dosage: ONE TABLET DAILY
     Dates: start: 20111128
  5. AMIODARONE HCL [Suspect]
     Indication: VENTRICULAR EXTRASYSTOLES
  6. DIGOXIN [Concomitant]
  7. AMIODARONE HCL [Suspect]
     Indication: ATRIAL FIBRILLATION
     Dosage: 200 MG, 2X/DAY
     Route: 048
     Dates: start: 20111221, end: 20120130
  8. LOSARTAN [Concomitant]
     Indication: HYPERTENSION
     Dosage: UNK
     Dates: start: 20110801

REACTIONS (1)
  - MYALGIA [None]
